FAERS Safety Report 9522328 (Version 1)
Quarter: 2013Q1

REPORT INFORMATION
  Report Type: Spontaneous
  Country: US (occurrence: None)
  Receive Date: 20130305
  Receipt Date: 20130305
  Transmission Date: 20140127
  Serious: Yes (Hospitalization, Other)
  Sender: FDA-Public Use
  Company Number: 163-21880-12032223

PATIENT
  Age: 67 Year
  Sex: Female

DRUGS (19)
  1. REVLIMID [Suspect]
     Indication: PLASMA CELL MYELOMA
     Dosage: 10 MG, DAILY X 14 DAYS, PO
     Route: 048
     Dates: start: 20110722
  2. CYTOXAN (CYCLOPHOSPHAMIDE) [Concomitant]
  3. VITAMIN B12 (CYANOCOBALAMIN) (UNKNOWN) [Concomitant]
  4. PAROXETENE (UNKNOWN) [Concomitant]
  5. PYRIDOXINE (PYRIDOXINE) (UNKNOWN) [Concomitant]
  6. ZOFRAN (ONDANSETRON HYDROCHLORIDE) (UNKNOWN) [Concomitant]
  7. PROAIR (FLUTICASONE PROPIONATE) (AEROSOL FOR INHALATION) [Concomitant]
  8. GABAPENTIN (GABAPENTIN) (UNKNOWN) (GABAPENTIN) [Concomitant]
  9. TORSEMIDE (TORASEMIDE) (UNKNOWN) [Concomitant]
  10. COREG (CARVEDILOL) (UNKNOWN) [Concomitant]
  11. SIMVASTATIN [Concomitant]
  12. VITAMIN D3 (COLECALCIFEROL) (UNKNOWN) [Concomitant]
  13. ASA (ACETYLSALICYLIC ACID) (UNKNOWN) [Concomitant]
  14. FLEXERIL (CYCLOBENZAPRINE HYDROCHLORIDE) (UNKNOWN) [Concomitant]
  15. PERCOCET (OXYCOCET) (UNKNOWN) [Concomitant]
  16. DEXAMETHASONE (DEXAMETHASONE) (UNKNOWN) [Concomitant]
  17. AMOXICILLIN (AMOXICILLIN) (UNKNOWN) [Concomitant]
  18. NAPROXEN SODIUM (NAPROXEN SODIUM) (UNKNOWN) [Concomitant]
  19. CEPHALEXIN (CEFALEXIN) (UNKNOWN) [Concomitant]

REACTIONS (8)
  - Urinary tract infection [None]
  - Renal failure [None]
  - Anaemia [None]
  - Dizziness [None]
  - Fall [None]
  - Dehydration [None]
  - Asthenia [None]
  - Plasma cell myeloma [None]
